FAERS Safety Report 24793277 (Version 1)
Quarter: 2024Q4

REPORT INFORMATION
  Report Type: Spontaneous
  Country: TR (occurrence: TR)
  Receive Date: 20241231
  Receipt Date: 20241231
  Transmission Date: 20250115
  Serious: Yes (Death)
  Sender: BIOGEN
  Company Number: TR-BIOGEN-2024BI01295323

PATIENT

DRUGS (1)
  1. SPINRAZA [Suspect]
     Active Substance: NUSINERSEN
     Indication: Product used for unknown indication
     Dosage: 2.4 MG/ML ?5 DOSES TOTAL
     Route: 050

REACTIONS (1)
  - Pneumonia [Fatal]
